FAERS Safety Report 9184545 (Version 1)
Quarter: 2012Q4

REPORT INFORMATION
  Report Type: 
  Country: CA (occurrence: CA)
  Receive Date: 20121101
  Receipt Date: 20121101
  Transmission Date: 20130627
  Serious: Yes (Other)
  Sender: FDA-Public Use
  Company Number: CA-ROCHE-1151088

PATIENT
  Age: 15 None
  Sex: Male

DRUGS (2)
  1. XOLAIR [Suspect]
     Indication: ASTHMA
     Route: 058
     Dates: start: 20100408
  2. XOLAIR [Suspect]
     Route: 065
     Dates: start: 20121025

REACTIONS (1)
  - Heart rate increased [Unknown]
